FAERS Safety Report 8101984-0 (Version None)
Quarter: 2012Q1

REPORT INFORMATION
  Report Type: 
  Country: None (occurrence: None)
  Receive Date: 20120131
  Receipt Date: 20120118
  Transmission Date: 20120608
  Serious: Yes (Hospitalization)
  Sender: FDA-Public Use
  Company Number: DE-ELI_LILLY_AND_COMPANY-DE201201005132

PATIENT
  Age: 74 Year
  Sex: Female

DRUGS (6)
  1. VITAMIN D [Concomitant]
  2. IBUPROFEN [Concomitant]
     Dosage: UNK, PRN
  3. FORTEO [Suspect]
     Indication: OSTEOPOROSIS
     Dosage: UNK, QD
     Route: 058
     Dates: start: 20110719
  4. BETA BLOCKING AGENTS [Concomitant]
     Indication: ARRHYTHMIA
  5. TRAMADOL HCL [Concomitant]
  6. CALCIUM [Concomitant]

REACTIONS (2)
  - HEART RATE INCREASED [None]
  - ARRHYTHMIA [None]
